FAERS Safety Report 25133410 (Version 5)
Quarter: 2025Q3

REPORT INFORMATION
  Report Type: Spontaneous
  Country: US (occurrence: US)
  Receive Date: 20250328
  Receipt Date: 20250917
  Transmission Date: 20251020
  Serious: No
  Sender: SANOFI AVENTIS
  Company Number: US-SA-2025SA089881

PATIENT
  Age: 60 Year
  Sex: Female
  Weight: 95 kg

DRUGS (16)
  1. DUPIXENT [Suspect]
     Active Substance: DUPILUMAB
     Indication: Eczema
     Dosage: 300 MG, QOW
     Route: 058
     Dates: start: 20250114, end: 20250428
  2. TACROLIMUS [Suspect]
     Active Substance: TACROLIMUS
     Indication: Eczema
     Dosage: BID
     Dates: start: 20250204, end: 2025
  3. VITAMIN C [Concomitant]
     Active Substance: ASCORBIC ACID
  4. VENTOLIN HFA [Concomitant]
     Active Substance: ALBUTEROL SULFATE
     Indication: Dyspnoea
     Dosage: UNK, Q6H
     Route: 055
  5. VENTOLIN HFA [Concomitant]
     Active Substance: ALBUTEROL SULFATE
     Indication: Wheezing
  6. VENTOLIN HFA [Concomitant]
     Active Substance: ALBUTEROL SULFATE
     Indication: Cough
  7. PIMECROLIMUS [Concomitant]
     Active Substance: PIMECROLIMUS
     Dosage: QD
  8. TRIAMCINOLONE ACETONIDE [Concomitant]
     Active Substance: TRIAMCINOLONE ACETONIDE
     Indication: Dermatitis atopic
     Dosage: UNK, BID
  9. BETAMETHASONE [Concomitant]
     Active Substance: BETAMETHASONE
     Indication: Dermatitis
     Dosage: BID
     Dates: start: 20250204
  10. ADBRY [Concomitant]
     Active Substance: TRALOKINUMAB-LDRM
     Dosage: 300 MG, QOW
     Dates: start: 20250409
  11. HYDROCORTISONE [Concomitant]
     Active Substance: HYDROCORTISONE
  12. EPINEPHRINE [Concomitant]
     Active Substance: EPINEPHRINE
     Indication: Anaphylactic reaction
     Route: 030
  13. VITAMIN D NOS [Concomitant]
     Active Substance: CHOLECALCIFEROL\ERGOCALCIFEROL
  14. LIDEX [Concomitant]
     Active Substance: FLUOCINONIDE
     Indication: Dermatitis atopic
  15. MOMETASONE FUROATE [Concomitant]
     Active Substance: MOMETASONE FUROATE
     Indication: Dermatitis atopic
  16. MOMETASONE [Concomitant]
     Active Substance: MOMETASONE

REACTIONS (11)
  - Urticaria [Not Recovered/Not Resolved]
  - Headache [Not Recovered/Not Resolved]
  - Pruritus [Not Recovered/Not Resolved]
  - Dermal cyst [Unknown]
  - Dry skin [Unknown]
  - Night sweats [Unknown]
  - Pain [Unknown]
  - Skin burning sensation [Unknown]
  - Eosinophil count increased [Unknown]
  - Dermatitis atopic [Unknown]
  - Sinusitis [Unknown]

NARRATIVE: CASE EVENT DATE: 20250101
